FAERS Safety Report 26022846 (Version 3)
Quarter: 2025Q4

REPORT INFORMATION
  Report Type: Spontaneous
  Country: EU (occurrence: EU)
  Receive Date: 20251110
  Receipt Date: 20251121
  Transmission Date: 20260117
  Serious: Yes (Hospitalization, Other)
  Sender: MYLAN
  Company Number: EU-INNOVIS-2025000103

PATIENT
  Age: 66 Year
  Sex: Male

DRUGS (2)
  1. LENALIDOMIDE [Suspect]
     Active Substance: LENALIDOMIDE
     Indication: Non-Hodgkin^s lymphoma
     Dosage: 10 MILLIGRAM, QD
  2. OBINUTUZUMAB [Suspect]
     Active Substance: OBINUTUZUMAB
     Indication: Non-Hodgkin^s lymphoma
     Dosage: UNK

REACTIONS (6)
  - COVID-19 pneumonia [Recovered/Resolved]
  - Hypogammaglobulinaemia [Recovered/Resolved]
  - Bronchopulmonary aspergillosis [Recovered/Resolved]
  - Infection in an immunocompromised host [Recovered/Resolved]
  - COVID-19 [Recovered/Resolved]
  - Off label use [Unknown]
